FAERS Safety Report 9803045 (Version 1)
Quarter: 2014Q1

REPORT INFORMATION
  Report Type: Spontaneous
  Country: US (occurrence: None)
  Receive Date: 20140106
  Receipt Date: 20140106
  Transmission Date: 20141002
  Serious: Yes (Life-Threatening)
  Sender: FDA-Public Use
  Company Number: None

PATIENT
  Sex: 0

DRUGS (13)
  1. LACTULOSE [Suspect]
     Indication: CONSTIPATION
     Dosage: 10G/15ML?15 TO 30 ML?2 BY MOUTH
     Route: 048
     Dates: start: 20130901
  2. CARBIDOPA/LEVODOPA [Concomitant]
  3. PARLODEL [Concomitant]
  4. BACOFLEN [Concomitant]
  5. CARTIA XT [Concomitant]
  6. SYNTHROID [Concomitant]
  7. BUSPIRONE HCL [Concomitant]
  8. FAMOTIDINE [Concomitant]
  9. CVS BRAND EASY FIBER [Concomitant]
  10. BAYER ASPIRIN [Concomitant]
  11. OMEGA THREE FISH OIL(CORDMEGA) [Concomitant]
  12. NATURE^S BOUNTY ACIDOPHILUS PROBIOTIC [Concomitant]
  13. COLACE [Concomitant]

REACTIONS (3)
  - Drug hypersensitivity [None]
  - Abdominal pain [None]
  - Drug interaction [None]
